FAERS Safety Report 8783061 (Version 3)
Quarter: 2012Q4

REPORT INFORMATION
  Report Type: 
  Country: US (occurrence: US)
  Receive Date: 20120913
  Receipt Date: 20121001
  Transmission Date: 20130627
  Serious: No
  Sender: FDA-Public Use
  Company Number: US-ASTRAZENECA-2012SE70437

PATIENT
  Age: 37 Year
  Sex: Female
  Weight: 68 kg

DRUGS (4)
  1. SEROQUEL [Suspect]
     Indication: POST-TRAUMATIC STRESS DISORDER
     Route: 048
  2. SEROQUEL [Suspect]
     Indication: POST-TRAUMATIC STRESS DISORDER
     Route: 048
     Dates: start: 201208
  3. SEROQUEL [Suspect]
     Indication: POST-TRAUMATIC STRESS DISORDER
     Dosage: GENERIC
     Route: 048
  4. KLONOPIN [Concomitant]
     Indication: AFFECTIVE DISORDER
     Route: 048

REACTIONS (8)
  - Panic attack [Not Recovered/Not Resolved]
  - Depersonalisation [Not Recovered/Not Resolved]
  - Feeling abnormal [Unknown]
  - Mood altered [Unknown]
  - Dissociation [Unknown]
  - Disease recurrence [Unknown]
  - Drug ineffective [Not Recovered/Not Resolved]
  - Off label use [Unknown]
